FAERS Safety Report 5228518-2 (Version None)
Quarter: 2007Q1

REPORT INFORMATION
  Report Type: 
  Country: None (occurrence: None)
  Receive Date: 20070205
  Receipt Date: 20070125
  Transmission Date: 20070707
  Serious: Yes (Hospitalization)
  Sender: FDA-Public Use
  Company Number: US-AVENTIS-200710505GDDC

PATIENT
  Age: 66 Year
  Sex: Male
  Weight: 51.5 kg

DRUGS (16)
  1. TAXOTERE [Suspect]
     Dosage: DOSE: UNK
     Route: 042
     Dates: start: 20070116, end: 20070116
  2. CISPLATIN [Suspect]
     Dosage: DOSE: UNK
     Dates: start: 20070116, end: 20070116
  3. FLUOROURACIL [Suspect]
     Dosage: DOSE: UNK
     Dates: start: 20070116, end: 20070116
  4. IMDUR [Concomitant]
     Dosage: DOSE: UNK
  5. LISINOPRIL [Concomitant]
     Dosage: DOSE: UNK
  6. DECADRON [Concomitant]
     Dosage: DOSE: UNK
  7. COREG [Concomitant]
     Dosage: DOSE: UNK
  8. DIGOXIN [Concomitant]
     Dosage: DOSE: UNK
  9. ASCORBIC ACID [Concomitant]
     Dosage: DOSE: UNK
  10. NORVASC [Concomitant]
     Dosage: DOSE: UNK
  11. ASPIRIN [Concomitant]
     Dosage: DOSE: UNK
  12. THIAMINE HCL [Concomitant]
     Dosage: DOSE: UNK
  13. ZYPREXA [Concomitant]
     Dosage: DOSE: UNK
  14. DURAGESIC                          /00174601/ [Concomitant]
     Dosage: DOSE: UNK
  15. LASIX [Concomitant]
     Dosage: DOSE: UNK
  16. EMEND [Concomitant]
     Dosage: DOSE: UNK

REACTIONS (4)
  - ACUTE MYOCARDIAL INFARCTION [None]
  - ATRIOVENTRICULAR BLOCK FIRST DEGREE [None]
  - BUNDLE BRANCH BLOCK LEFT [None]
  - SYNCOPE [None]
